FAERS Safety Report 10067508 (Version 1)
Quarter: 2014Q2

REPORT INFORMATION
  Report Type: Spontaneous
  Country: GB (occurrence: None)
  Receive Date: 20140407
  Receipt Date: 20140407
  Transmission Date: 20141212
  Serious: Yes (Hospitalization, Other)
  Sender: FDA-Public Use
  Company Number: 2014AP002384

PATIENT
  Age: 64 Year
  Sex: Female

DRUGS (11)
  1. INDAPAMIDE (INDAPAMIDE) [Concomitant]
  2. INFLIX IMAB (INFLIXIMAB) [Concomitant]
  3. LANSOPRAZOLE (LANSOPRAZOLE) [Concomitant]
  4. METHOTREXATE (METHOTREXATE) [Concomitant]
  5. NAPROXEN (NAPROXEN) [Concomitant]
  6. ALENDRONIC ACID (ALENDRONIC ACID) [Suspect]
     Route: 048
     Dates: start: 200711, end: 201403
  7. ASPIRIN (ACETYLSALICYLIC ACID) [Concomitant]
  8. ATORVASTATIN (ATORVASTATIN) [Concomitant]
  9. BISOPROLOL (BISOPROLOL) [Concomitant]
  10. CANDESARTAN (CANDESARTAN) [Concomitant]
  11. CO-COMADOL (PANADEINE CO) [Concomitant]

REACTIONS (1)
  - Atypical fracture [None]
